FAERS Safety Report 5841973-X (Version None)
Quarter: 2008Q3

REPORT INFORMATION
  Report Type: 
  Country: None (occurrence: None)
  Receive Date: 20080812
  Receipt Date: 20030812
  Transmission Date: 20090109
  Serious: Yes (Other)
  Sender: FDA-Public Use
  Company Number: US-MERCK-0304USA01697

PATIENT
  Age: 45 Year
  Sex: Female

DRUGS (7)
  1. SINGULAIR [Suspect]
     Indication: ASTHMA
     Route: 048
     Dates: start: 20010601, end: 20030412
  2. CLONIDINE [Concomitant]
     Route: 065
  3. HYZAAR [Concomitant]
     Route: 048
  4. VICODIN [Concomitant]
     Route: 065
  5. ALBUTEROL [Concomitant]
     Route: 065
  6. [THERAPY UNSPECIFIED] [Concomitant]
     Route: 065
  7. PREVACID [Concomitant]
     Route: 065

REACTIONS (10)
  - ASTHMA [None]
  - BLOOD CORTICOTROPHIN INCREASED [None]
  - CARPUS CURVUS [None]
  - CREATININE URINE INCREASED [None]
  - HYPERTENSION [None]
  - LYMPHOMA [None]
  - OEDEMA [None]
  - RASH MACULAR [None]
  - THROMBOSIS [None]
  - VASCULAR NEOPLASM [None]
